FAERS Safety Report 7489417-9 (Version None)
Quarter: 2011Q2

REPORT INFORMATION
  Report Type: 
  Country: None (occurrence: None)
  Receive Date: 20110518
  Receipt Date: 20110511
  Transmission Date: 20111010
  Serious: Yes (Hospitalization, Disabling)
  Sender: FDA-Public Use
  Company Number: US-MERCK-1105USA01971

PATIENT
  Age: 65 Year
  Sex: Female

DRUGS (5)
  1. MIRAPEX [Concomitant]
     Route: 065
  2. EVISTA [Concomitant]
     Route: 065
  3. BONIVA [Concomitant]
     Route: 065
     Dates: start: 20010101, end: 20090101
  4. CARBIDOPA AND LEVODOPA [Concomitant]
     Route: 065
  5. FOSAMAX [Suspect]
     Indication: OSTEOPENIA
     Route: 048
     Dates: start: 20010101, end: 20090101

REACTIONS (4)
  - ARTHROPATHY [None]
  - WALKING AID USER [None]
  - OSTEOPOROSIS [None]
  - OSTEONECROSIS [None]
